FAERS Safety Report 24576358 (Version 1)
Quarter: 2024Q4

REPORT INFORMATION
  Report Type: Report from Study
  Country: US (occurrence: US)
  Receive Date: 20241104
  Receipt Date: 20241104
  Transmission Date: 20250115
  Serious: No
  Sender: BIOVITRUM
  Company Number: US-BIOVITRUM-2024-US-014059

PATIENT
  Age: 59 Year
  Sex: Female

DRUGS (1)
  1. KINERET [Suspect]
     Active Substance: ANAKINRA
     Indication: Pericarditis infective
     Dosage: ONCE DAILY
     Route: 058
     Dates: start: 20241011

REACTIONS (5)
  - Pharyngeal swelling [Unknown]
  - Lip swelling [Unknown]
  - Feeling abnormal [Unknown]
  - Adverse drug reaction [Unknown]
  - Off label use [Not Recovered/Not Resolved]

NARRATIVE: CASE EVENT DATE: 20241011
